FAERS Safety Report 17035425 (Version 2)
Quarter: 2019Q4

REPORT INFORMATION
  Report Type: Spontaneous
  Country: FR (occurrence: FR)
  Receive Date: 20191115
  Receipt Date: 20191202
  Transmission Date: 20200122
  Serious: Yes (Hospitalization, Other)
  Sender: FDA-Public Use
  Company Number: FR-AUROBINDO-AUR-APL-2019-072993

PATIENT
  Age: 72 Year
  Sex: Male

DRUGS (36)
  1. VELMETIA [Suspect]
     Active Substance: METFORMIN\SITAGLIPTIN
     Indication: PRODUCT USED FOR UNKNOWN INDICATION
     Dosage: 2 DOSAGE FORM, ONCE A DAY, (50MG/1000MG: 0-1-1 ) (LONG-TERM)
     Route: 048
  2. ERYTHROPOIETIN [Suspect]
     Active Substance: ERYTHROPOIETIN
     Indication: PRODUCT USED FOR UNKNOWN INDICATION
     Dosage: UNK
     Route: 065
  3. DIAMICRON [Suspect]
     Active Substance: GLICLAZIDE
     Indication: PRODUCT USED FOR UNKNOWN INDICATION
     Dosage: 60 MILLIGRAM, ONCE A DAY(1-0-0, MODIFIED-RELEASE TABLET) (LONG-TERM)
     Route: 048
  4. TAZOCILLINE [Suspect]
     Active Substance: PIPERACILLIN SODIUM\TAZOBACTAM SODIUM
     Indication: FEBRILE BONE MARROW APLASIA
     Dosage: 1 DOSAGE FORM, (4G/500MG: 1 INJECTION)
     Route: 042
     Dates: start: 20191008, end: 20191008
  5. ATARAX [Concomitant]
     Active Substance: HYDROXYZINE HYDROCHLORIDE
     Indication: PRODUCT USED FOR UNKNOWN INDICATION
     Dosage: 1 DOSAGE FORM,PM
     Route: 065
     Dates: start: 20191029
  6. ZARZIO [Suspect]
     Active Substance: FILGRASTIM
     Indication: NEUTROPENIA
     Dosage: 30 MEGA-INTERNATIONAL UNIT, ONCE A DAY
     Route: 058
     Dates: start: 20191015
  7. PENTACARINAT [Concomitant]
     Active Substance: PENTAMIDINE ISETHIONATE
     Indication: PRODUCT USED FOR UNKNOWN INDICATION
     Dosage: UNK
     Route: 065
  8. LASILIX [Concomitant]
     Active Substance: FUROSEMIDE
     Indication: PRODUCT USED FOR UNKNOWN INDICATION
     Dosage: 40 MILLIGRAM, PM
     Route: 065
     Dates: start: 20191028
  9. CIPROFLOXACIN. [Suspect]
     Active Substance: CIPROFLOXACIN
     Indication: FEBRILE BONE MARROW APLASIA
     Dosage: 500 MILLIGRAM, TWO TIMES A DAY,  (1-0-1)
     Route: 048
     Dates: start: 20191011, end: 20191018
  10. CIPROFLOXACIN. [Suspect]
     Active Substance: CIPROFLOXACIN
     Dosage: 500 MILLIGRAM, ONCE A DAY, (  (1-0-1))
     Route: 048
     Dates: start: 20191011, end: 20191018
  11. VALACYCLOVIR [Suspect]
     Active Substance: VALACYCLOVIR HYDROCHLORIDE
     Dosage: 500 MILLIGRAM, EVERY HOUR,  (1-0-1)
     Route: 048
     Dates: start: 20191009
  12. LITAK [Suspect]
     Active Substance: CLADRIBINE
     Indication: HAIRY CELL LEUKAEMIA RECURRENT
     Dosage: 11.6 MILLIGRAM, ONCE A DAY(11.60 MG PER DAY FROM D1 TO D5)
     Route: 058
     Dates: start: 20190930, end: 20191004
  13. BACTRIM [Suspect]
     Active Substance: SULFAMETHOXAZOLE\TRIMETHOPRIM
     Dosage: 3 DOSAGE FORM, EVERY WEEK, (1 TABLET OF 800/160MG A DAY ON SUNDAY, WEDNESDAY AND FRIDAY)
     Route: 048
     Dates: start: 20190930
  14. LASILIX [Concomitant]
     Active Substance: FUROSEMIDE
     Dosage: 40 MILLIGRAM, ONCE A DAY,(IN THE MORNINGS)
     Route: 065
     Dates: start: 20191029
  15. VALACYCLOVIR [Suspect]
     Active Substance: VALACYCLOVIR HYDROCHLORIDE
     Dosage: 500 MILLIGRAM, TWO TIMES A DAY, (1-0-1)
     Route: 048
     Dates: start: 20191009
  16. KARDEGIC [Suspect]
     Active Substance: ASPIRIN DL-LYSINE
     Indication: PRODUCT USED FOR UNKNOWN INDICATION
     Dosage: 75 MILLIGRAM, ONCE A DAY(0-1-0) (LONG-TERM)
     Route: 048
  17. BINOCRIT [Suspect]
     Active Substance: ERYTHROPOIETIN
     Indication: ANAEMIA
     Dosage: 30000 INTERNATIONAL UNIT, EVERY WEEK, (EVERY MONDAY)
     Route: 058
     Dates: start: 20191014
  18. CEFTRIAXONE. [Suspect]
     Active Substance: CEFTRIAXONE
     Indication: ANTIBIOTIC THERAPY
     Dosage: 1 GRAM, ONCE A DAY
     Route: 042
     Dates: start: 20191008, end: 20191009
  19. ESOMEPRAZOLE GASTRO-RESISTANT TABLETS [Suspect]
     Active Substance: ESOMEPRAZOLE
     Indication: PRODUCT USED FOR UNKNOWN INDICATION
     Dosage: 20 MILLIGRAM, ONCE A DAY(0-0-1), (LONG TERM)
     Route: 048
  20. TRULICITY [Suspect]
     Active Substance: DULAGLUTIDE
     Indication: PRODUCT USED FOR UNKNOWN INDICATION
     Dosage: 1 DOSAGE FORM, EVERY WEEK (1 INJECTION OF 1.5 MG ON SUNDAY) (LONG-TERM)
     Route: 058
  21. FUROSEMIDE. [Concomitant]
     Active Substance: FUROSEMIDE
     Dosage: 40 MILLIGRAM, ONCE A DAY, (IN THE MORNINGS)
     Route: 065
     Dates: start: 20191029
  22. FUROSEMIDE. [Concomitant]
     Active Substance: FUROSEMIDE
     Dosage: 20 MILLIGRAM, AM
     Route: 065
     Dates: start: 20191031
  23. FLUVASTATIN [Suspect]
     Active Substance: FLUVASTATIN SODIUM
     Indication: PRODUCT USED FOR UNKNOWN INDICATION
     Dosage: 20 MILLIGRAM, ONCE A DAY (0-0-1)
     Route: 048
  24. VELMETIA [Suspect]
     Active Substance: METFORMIN\SITAGLIPTIN
     Dosage: 1 DOSAGE FORM, ONCE A DAY, ((50MG/1000MG: 0-1-1 ) (LONG-TERM))
     Route: 048
  25. FORLAX [Suspect]
     Active Substance: POLYETHYLENE GLYCOL 4000
     Indication: PRODUCT USED FOR UNKNOWN INDICATION
     Dosage: 10 GRAM, AS NECESSARY, (LONG-TERM)
     Route: 048
  26. FUROSEMIDE. [Concomitant]
     Active Substance: FUROSEMIDE
     Indication: PRODUCT USED FOR UNKNOWN INDICATION
     Dosage: 40 MILLIGRAM, ONCE A DAY, (PM)
     Route: 065
     Dates: start: 20191028
  27. POLARAMINE [Concomitant]
     Active Substance: DEXCHLORPHENIRAMINE MALEATE
     Indication: PRODUCT USED FOR UNKNOWN INDICATION
     Dosage: 1 DOSAGE FORM, ONCE A DAY
     Route: 065
     Dates: start: 20191031
  28. RAMIPRIL TABLET [Suspect]
     Active Substance: RAMIPRIL
     Indication: PRODUCT USED FOR UNKNOWN INDICATION
     Dosage: 2.5 MILLIGRAM, ONCE A DAY(0-1-0) (LONG-TERM)
     Route: 048
  29. VALACYCLOVIR [Suspect]
     Active Substance: VALACYCLOVIR HYDROCHLORIDE
     Indication: INFECTION PROPHYLAXIS
     Dosage: 500 MILLIGRAM, EVERY TWO HOURS, (1-0-1)
     Route: 048
     Dates: start: 20191009
  30. FOLINORAL [Suspect]
     Active Substance: LEUCOVORIN CALCIUM
     Indication: PROPHYLAXIS
     Dosage: 25 MILLIGRAM, EVERY WEEK (1 TABLET OF 25 MG ON SUNDAY)
     Route: 048
     Dates: start: 20190930
  31. BACTRIM [Suspect]
     Active Substance: SULFAMETHOXAZOLE\TRIMETHOPRIM
     Indication: INFECTION PROPHYLAXIS
     Dosage: 1 DOSAGE FORM, ONCE A DAY(1 TABLET OF 800/160MG A DAY ON SUNDAY, WEDNESDAY AND FRIDAY)
     Route: 048
     Dates: start: 20190930
  32. PELMEG [Suspect]
     Active Substance: PEGFILGRASTIM
     Indication: NEUTROPENIA
     Dosage: 6 MILLIGRAM, TOTAL
     Route: 058
     Dates: start: 20191007, end: 20191007
  33. POLARAMINE [Concomitant]
     Active Substance: DEXCHLORPHENIRAMINE MALEATE
     Indication: PRODUCT USED FOR UNKNOWN INDICATION
     Dosage: 1 DOSAGE FORM, (1 AMPOULE, NIGHT)
     Route: 065
     Dates: start: 20191029
  34. POLARAMINE [Concomitant]
     Active Substance: DEXCHLORPHENIRAMINE MALEATE
     Dosage: 1 DOSAGE FORM, ONCE A DAY
     Route: 065
     Dates: start: 20191031
  35. BEPANTHENE [Concomitant]
     Active Substance: DEXPANTHENOL
     Indication: SKIN EXFOLIATION
     Dosage: UNK
     Route: 065
     Dates: start: 20191031
  36. LASILIX [Concomitant]
     Active Substance: FUROSEMIDE
     Dosage: 20 MILLIGRAM, AM
     Route: 065
     Dates: start: 20191031

REACTIONS (8)
  - Generalised oedema [Not Recovered/Not Resolved]
  - Pruritus [Recovered/Resolved]
  - Anaemia [Unknown]
  - Rash [Not Recovered/Not Resolved]
  - Face oedema [Unknown]
  - Febrile bone marrow aplasia [Recovered/Resolved]
  - Neutropenia [Unknown]
  - Dysuria [Unknown]

NARRATIVE: CASE EVENT DATE: 201910
